FAERS Safety Report 12637333 (Version 1)
Quarter: 2016Q3

REPORT INFORMATION
  Report Type: Spontaneous
  Country: US (occurrence: US)
  Receive Date: 20160809
  Receipt Date: 20160809
  Transmission Date: 20161109
  Serious: No
  Sender: FDA-Public Use
  Company Number: US-BEH-2015056695

PATIENT
  Sex: Female
  Weight: 121 kg

DRUGS (29)
  1. DIAZEPAM. [Concomitant]
     Active Substance: DIAZEPAM
  2. HYDROXYCHLORIDE [Concomitant]
  3. FLUCONAZOLE. [Concomitant]
     Active Substance: FLUCONAZOLE
  4. SPIRONOLACTONE. [Concomitant]
     Active Substance: SPIRONOLACTONE
  5. ACETAMINOPHEN. [Concomitant]
     Active Substance: ACETAMINOPHEN
  6. SODIUM CHLORIDE. [Concomitant]
     Active Substance: SODIUM CHLORIDE
  7. FOLIC ACID. [Concomitant]
     Active Substance: FOLIC ACID
  8. FLUOXETINE [Concomitant]
     Active Substance: FLUOXETINE HYDROCHLORIDE
  9. DIPHENHYDRAMINE. [Concomitant]
     Active Substance: DIPHENHYDRAMINE
  10. VITAMIN D2 [Concomitant]
     Active Substance: ERGOCALCIFEROL
  11. MAGNESIUM [Concomitant]
     Active Substance: MAGNESIUM
  12. OLANZAPINE. [Concomitant]
     Active Substance: OLANZAPINE
  13. FAMOTIDINE. [Concomitant]
     Active Substance: FAMOTIDINE
  14. EPIPEN [Concomitant]
     Active Substance: EPINEPHRINE
  15. HYDROXYCHLOROQUINE SULFATE. [Concomitant]
     Active Substance: HYDROXYCHLOROQUINE SULFATE
  16. METHOTREXATE. [Concomitant]
     Active Substance: METHOTREXATE
  17. CELECOXIB. [Concomitant]
     Active Substance: CELECOXIB
  18. MONTELUKAST SODIUM. [Concomitant]
     Active Substance: MONTELUKAST SODIUM
  19. ASPIRIN. [Concomitant]
     Active Substance: ASPIRIN
  20. CYANOCOBALAMIN INJECTION [Concomitant]
  21. HEPARIN [Concomitant]
     Active Substance: HEPARIN SODIUM
  22. ALEVE [Concomitant]
     Active Substance: NAPROXEN SODIUM
  23. PROVENTIL [Concomitant]
     Active Substance: ALBUTEROL
  24. MOMETASONE FUROATE. [Concomitant]
     Active Substance: MOMETASONE FUROATE
  25. BREO ELLIPTA [Concomitant]
     Active Substance: FLUTICASONE FUROATE\VILANTEROL TRIFENATATE
  26. PRIVIGEN [Suspect]
     Active Substance: HUMAN IMMUNOGLOBULIN G
     Indication: CHRONIC INFLAMMATORY DEMYELINATING POLYRADICULONEUROPATHY
     Dosage: AS DIRECTED
     Route: 042
  27. NEXIUM [Concomitant]
     Active Substance: ESOMEPRAZOLE MAGNESIUM
  28. PHENTERMINE. [Concomitant]
     Active Substance: PHENTERMINE
  29. NYSTATIN CREAM [Concomitant]
     Active Substance: NYSTATIN

REACTIONS (3)
  - Fatigue [Unknown]
  - Rash [Unknown]
  - Pain [Unknown]
